FAERS Safety Report 7832099-4 (Version None)
Quarter: 2011Q4

REPORT INFORMATION
  Report Type: 
  Country: None (occurrence: None)
  Receive Date: 20111022
  Receipt Date: 20100907
  Transmission Date: 20120403
  Serious: No
  Sender: FDA-Public Use
  Company Number: US-BAYER-201033051NA

PATIENT
  Age: 88 Year
  Sex: Male
  Weight: 152 kg

DRUGS (2)
  1. ULTRAVIST (PHARMACY BULK) [Suspect]
     Indication: INTESTINAL MASS
  2. ULTRAVIST (PHARMACY BULK) [Suspect]
     Indication: COMPUTERISED TOMOGRAM
     Dosage: 80CC, LEFT ANITCUB WITH POWER INJECTOR @2.0C/SEC
     Route: 042
     Dates: start: 20100907, end: 20100907

REACTIONS (2)
  - DYSPNOEA [None]
  - CHEST DISCOMFORT [None]
